FAERS Safety Report 13244589 (Version 1)
Quarter: 2017Q1

REPORT INFORMATION
  Report Type: Spontaneous
  Country: US (occurrence: US)
  Receive Date: 20170216
  Receipt Date: 20170216
  Transmission Date: 20170428
  Serious: No
  Sender: FDA-Public Use
  Company Number: US-JAZZ-2017-US-000631

PATIENT
  Sex: Female

DRUGS (16)
  1. FAMOTIDINE. [Concomitant]
     Active Substance: FAMOTIDINE
  2. LEVOTHYROXINE. [Concomitant]
     Active Substance: LEVOTHYROXINE
  3. NEXIUM [Concomitant]
     Active Substance: ESOMEPRAZOLE MAGNESIUM
  4. XYREM [Suspect]
     Active Substance: SODIUM OXYBATE
     Indication: NARCOLEPSY
     Dosage: 2.25G, BID
     Route: 048
     Dates: start: 201605, end: 2016
  5. NORCO [Concomitant]
     Active Substance: ACETAMINOPHEN\HYDROCODONE BITARTRATE
  6. MODAFINIL. [Concomitant]
     Active Substance: MODAFINIL
  7. XYZAL [Concomitant]
     Active Substance: LEVOCETIRIZINE DIHYDROCHLORIDE
  8. PROVENTIL HFA                      /00139501/ [Concomitant]
  9. XYREM [Suspect]
     Active Substance: SODIUM OXYBATE
     Dosage: 3G, BID
     Route: 048
     Dates: start: 201607
  10. GABAPENTIN. [Concomitant]
     Active Substance: GABAPENTIN
  11. NASONEX [Concomitant]
     Active Substance: MOMETASONE FUROATE
  12. ADVAIR HFA [Concomitant]
     Active Substance: FLUTICASONE PROPIONATE\SALMETEROL XINAFOATE
  13. ELOCON [Concomitant]
     Active Substance: MOMETASONE FUROATE
  14. EPIPEN [Concomitant]
     Active Substance: EPINEPHRINE
  15. VITAMIN D3 [Concomitant]
     Active Substance: CHOLECALCIFEROL
  16. ALLERGY                            /00000402/ [Concomitant]

REACTIONS (1)
  - Nasopharyngitis [Unknown]
